FAERS Safety Report 24305928 (Version 2)
Quarter: 2025Q1

REPORT INFORMATION
  Report Type: Spontaneous
  Country: FR (occurrence: FR)
  Receive Date: 20240911
  Receipt Date: 20250212
  Transmission Date: 20250408
  Serious: Yes (Hospitalization)
  Sender: AMGEN
  Company Number: FR-ROCHE-10000016498

PATIENT
  Age: 49 Year
  Sex: Female
  Weight: 86 kg

DRUGS (19)
  1. BEVACIZUMAB [Suspect]
     Active Substance: BEVACIZUMAB
     Indication: Ovarian epithelial cancer
     Dosage: 1175 MILLIGRAM, Q3WK (DOSE LAST STUDY DRUG ADMIN PRIOR AE AND SAE 1250 MG.MOST RECENT DOSE OF STUDY
     Route: 042
     Dates: start: 20240229
  2. INAVOLISIB [Concomitant]
     Active Substance: INAVOLISIB
     Indication: Ovarian epithelial cancer
     Dosage: 9 MILLIGRAM, QD
     Route: 048
     Dates: start: 20240229
  3. LOVENOX [Concomitant]
     Active Substance: ENOXAPARIN SODIUM
     Indication: Embolism
     Dosage: 4000 INTERNATIONAL UNIT, QD
     Route: 040
     Dates: start: 20240208
  4. LOPERAMIDE [Concomitant]
     Active Substance: LOPERAMIDE
     Indication: Diarrhoea
     Route: 048
     Dates: start: 20240229, end: 202406
  5. PREGABALIN [Concomitant]
     Active Substance: PREGABALIN
     Indication: Pain
     Route: 048
     Dates: start: 20240207, end: 20240820
  6. METOPIMAZINE [Concomitant]
     Active Substance: METOPIMAZINE
     Route: 048
     Dates: start: 20240229
  7. OXAZEPAM [Concomitant]
     Active Substance: OXAZEPAM
     Indication: Anxiety
     Route: 048
     Dates: start: 20240207, end: 20240820
  8. AUGMENTIN [Concomitant]
     Active Substance: AMOXICILLIN\CLAVULANATE POTASSIUM
     Route: 048
     Dates: start: 20240424
  9. MEROPENEM [Concomitant]
     Active Substance: MEROPENEM
     Indication: Infection
     Route: 065
     Dates: start: 20240624, end: 20240725
  10. DAPTOMYCIN [Concomitant]
     Active Substance: DAPTOMYCIN
     Indication: Infection
     Dosage: 500 MILLIGRAM, QD
     Route: 040
     Dates: start: 20240624, end: 20240813
  11. DOLIPRANE [Concomitant]
     Active Substance: ACETAMINOPHEN
     Indication: Pain
     Route: 048
     Dates: start: 20240207, end: 20240820
  12. POLYETHYLENE GLYCOLS [Concomitant]
     Active Substance: POLYETHYLENE GLYCOLS
     Indication: Constipation
     Route: 048
     Dates: start: 20240419, end: 20240806
  13. MORPHINE [Concomitant]
     Active Substance: MORPHINE
     Indication: Pain
     Route: 040
     Dates: start: 20240301
  14. MORPHINE [Concomitant]
     Active Substance: MORPHINE
     Route: 065
     Dates: start: 20240514
  15. LIDOCAINE [Concomitant]
     Active Substance: LIDOCAINE
     Indication: Pain
     Route: 061
     Dates: start: 20240419, end: 20240725
  16. PANTOPRAZOLE [Concomitant]
     Active Substance: PANTOPRAZOLE
     Indication: Abdominal pain upper
     Dosage: 20 MILLIGRAM, QD
     Route: 048
     Dates: start: 20240702, end: 20240820
  17. VENLAFAXINE [Concomitant]
     Active Substance: VENLAFAXINE HYDROCHLORIDE
     Indication: Anxiety
     Route: 048
     Dates: start: 20240208, end: 20240820
  18. VOGALENE [Concomitant]
     Active Substance: METOPIMAZINE
     Indication: Nausea
     Route: 048
     Dates: start: 20240514, end: 20240614
  19. GUAR GUM [Concomitant]
     Active Substance: GUAR GUM
     Dosage: GIVEN FOR PROPHYLAXIS IS YES
     Route: 048
     Dates: start: 20240422

REACTIONS (1)
  - Postoperative wound infection [Recovered/Resolved]

NARRATIVE: CASE EVENT DATE: 20240702
